FAERS Safety Report 18340887 (Version 1)
Quarter: 2020Q4

REPORT INFORMATION
  Report Type: Spontaneous
  Country: DE (occurrence: DE)
  Receive Date: 20201003
  Receipt Date: 20201003
  Transmission Date: 20210113
  Serious: Yes (Other)
  Sender: FDA-Public Use
  Company Number: DE-009507513-2010DEU000428

PATIENT
  Sex: Female

DRUGS (1)
  1. REMERGIL SOLTAB [Suspect]
     Active Substance: MIRTAZAPINE
     Dosage: 30 MG
     Route: 048

REACTIONS (1)
  - Pulmonary hypertension [Unknown]
